FAERS Safety Report 4278907-8 (Version None)
Quarter: 2004Q1

REPORT INFORMATION
  Report Type: 
  Country: None (occurrence: None)
  Receive Date: 20040122
  Receipt Date: 20040122
  Transmission Date: 20041129
  Serious: Yes (Other)
  Sender: FDA-Public Use
  Company Number: None

PATIENT
  Age: 5 Month
  Sex: Male

DRUGS (1)
  1. PALIVIZUMAB [Suspect]
     Dates: start: 20040116, end: 20040116

REACTIONS (2)
  - ERYTHEMA [None]
  - URTICARIA [None]
